FAERS Safety Report 19082407 (Version 1)
Quarter: 2021Q2

REPORT INFORMATION
  Report Type: Spontaneous
  Country: JP (occurrence: JP)
  Receive Date: 20210401
  Receipt Date: 20210401
  Transmission Date: 20210717
  Serious: Yes (Hospitalization, Other)
  Sender: FDA-Public Use
  Company Number: JP-B.I. PHARMACEUTICALS,INC./RIDGEFIELD-2021-BI-094485

PATIENT
  Age: 56 Year
  Sex: Female
  Weight: 48 kg

DRUGS (17)
  1. DIPYRIDAMOLE. [Suspect]
     Active Substance: DIPYRIDAMOLE
     Indication: HYPERTENSION
     Dosage: 300MG PER DAY
     Route: 048
     Dates: start: 20000415, end: 20000507
  2. NIFEDIPINE. [Concomitant]
     Active Substance: NIFEDIPINE
     Indication: HYPERTENSION
     Dosage: 40MG TWICE PER DAY
     Route: 048
     Dates: start: 20000317, end: 20000507
  3. WARFARIN [Concomitant]
     Active Substance: WARFARIN
     Indication: HAEMORRHAGE
     Dosage: 3MG PER DAY
     Route: 048
     Dates: start: 20000328, end: 20000331
  4. SPIRONOLACTONE. [Concomitant]
     Active Substance: SPIRONOLACTONE
     Indication: HYPERTENSION
     Dosage: 50MG PER DAY
     Route: 048
     Dates: start: 20000321, end: 20000331
  5. AROTINOLOL [Concomitant]
     Active Substance: AROTINOLOL
     Indication: HYPERTENSION
     Dosage: 10MG PER DAY
     Route: 048
     Dates: start: 20000324, end: 20000329
  6. SENNOSIDES. [Concomitant]
     Active Substance: SENNOSIDES
     Indication: CONSTIPATION
     Dosage: 4MG PER DAY
     Route: 048
     Dates: start: 20000324, end: 20000506
  7. DOXAZOSIN [Concomitant]
     Active Substance: DOXAZOSIN MESYLATE
     Indication: HYPERTENSION
     Dosage: 4MG TWICE PER DAY
     Route: 048
     Dates: start: 20000317, end: 20000323
  8. AROTINOLOL [Concomitant]
     Active Substance: AROTINOLOL
     Indication: HYPERTENSION
     Dosage: 10MG PER DAY
     Route: 048
     Dates: start: 20000408, end: 20000507
  9. ZANTAC [Suspect]
     Active Substance: RANITIDINE HYDROCHLORIDE
     Indication: GASTRITIS
     Dosage: 150MG PER DAY
     Route: 048
     Dates: start: 20000321, end: 20000508
  10. FUROSEMIDE. [Suspect]
     Active Substance: FUROSEMIDE
     Indication: HYPERTENSION
     Dosage: 40MG PER DAY
     Route: 048
     Dates: start: 20000321, end: 20000507
  11. ASPIRIN DIALUMINATE MIXT [Concomitant]
     Indication: ANAEMIA
     Dosage: 81MG PER DAY
     Route: 048
     Dates: start: 20000321, end: 20000507
  12. CILNIDIPINE [Concomitant]
     Active Substance: CILNIDIPINE
     Indication: HYPERTENSION
     Dosage: 20MG PER DAY
     Route: 048
     Dates: start: 20000321, end: 20000507
  13. DOXAZOSIN [Concomitant]
     Active Substance: DOXAZOSIN MESYLATE
     Indication: HYPERTENSION
     Dosage: 6MG PER DAY
     Route: 048
     Dates: start: 20000324, end: 20000419
  14. ZYLORIC [Suspect]
     Active Substance: ALLOPURINOL
     Indication: HYPERURICAEMIA
     Dosage: 100MG PER DAY
     Route: 048
     Dates: start: 20000411, end: 20000502
  15. MAGNESIUM OXIDE. [Concomitant]
     Active Substance: MAGNESIUM OXIDE
     Indication: CONSTIPATION
     Dosage: 2G PER DAY
     Route: 048
     Dates: start: 20000321, end: 20000507
  16. ENALAPRIL [Concomitant]
     Active Substance: ENALAPRIL
     Indication: HYPERTENSION
     Dosage: 2.5MG PER DAY
     Route: 048
     Dates: start: 20000328, end: 20000401
  17. CHONDROITIN [Concomitant]
     Active Substance: CHONDROITIN
     Indication: HAEMORRHAGE
     Dosage: 200MG PER DAY
     Route: 048
     Dates: start: 20000406, end: 20000507

REACTIONS (8)
  - Circulatory collapse [Recovered/Resolved]
  - Purpura [Recovered/Resolved]
  - Drug reaction with eosinophilia and systemic symptoms [Recovered/Resolved]
  - Rash [Recovered/Resolved]
  - Blood pressure decreased [Recovered/Resolved]
  - Stevens-Johnson syndrome [Recovered/Resolved]
  - Pyrexia [Recovered/Resolved]
  - Erythema multiforme [Recovered/Resolved]

NARRATIVE: CASE EVENT DATE: 20000502
